FAERS Safety Report 20223528 (Version 2)
Quarter: 2022Q1

REPORT INFORMATION
  Report Type: Spontaneous
  Country: IL (occurrence: None)
  Receive Date: 20211223
  Receipt Date: 20220126
  Transmission Date: 20220423
  Serious: Yes (Other)
  Sender: FDA-Public Use
  Company Number: IL-Eisai Medical Research-EC-2021-105523

PATIENT
  Age: 78 Year
  Sex: Female

DRUGS (1)
  1. LENVIMA [Suspect]
     Active Substance: LENVATINIB
     Indication: Thymoma malignant
     Route: 048
     Dates: start: 202106, end: 202110

REACTIONS (2)
  - Myasthenia gravis [Unknown]
  - Product use in unapproved indication [Unknown]

NARRATIVE: CASE EVENT DATE: 20211001
